FAERS Safety Report 7323166-2 (Version None)
Quarter: 2011Q1

REPORT INFORMATION
  Report Type: 
  Country: None (occurrence: None)
  Receive Date: 20110216
  Receipt Date: 20110203
  Transmission Date: 20110831
  Serious: Yes (Death, Hospitalization)
  Sender: FDA-Public Use
  Company Number: UTC-005104

PATIENT
  Age: 37 Year
  Sex: Male
  Weight: 113.4 kg

DRUGS (4)
  1. REMODULIN [Suspect]
     Dosage: SUBCUTANEOUS
     Route: 058
     Dates: start: 20080228
  2. REVATIO [Concomitant]
  3. DIURETICS (DIURETICS) [Concomitant]
  4. COUMADIN [Concomitant]

REACTIONS (2)
  - FLUID RETENTION [None]
  - HYPOTENSION [None]
